FAERS Safety Report 19587129 (Version 1)
Quarter: 2021Q3

REPORT INFORMATION
  Report Type: Spontaneous
  Country: US (occurrence: US)
  Receive Date: 20210720
  Receipt Date: 20210720
  Transmission Date: 20211014
  Serious: No
  Sender: FDA-Public Use
  Company Number: None

PATIENT
  Age: 71 Year
  Sex: Male
  Weight: 99 kg

DRUGS (1)
  1. METHAZOLAMIDE (METHAZOLAMIDE 50MG TAB) [Suspect]
     Active Substance: METHAZOLAMIDE
     Indication: OPEN ANGLE GLAUCOMA
     Route: 048
     Dates: start: 20130926, end: 20131016

REACTIONS (2)
  - Fatigue [None]
  - Dysgeusia [None]
